FAERS Safety Report 23905013 (Version 1)
Quarter: 2024Q2

REPORT INFORMATION
  Report Type: Other
  Country: US (occurrence: None)
  Receive Date: 20240527
  Receipt Date: 20240527
  Transmission Date: 20240716
  Serious: Yes (Hospitalization, Other)
  Sender: FDA-Public Use
  Company Number: US-ROCHE-3567014

PATIENT

DRUGS (2)
  1. RITUXIMAB [Suspect]
     Active Substance: RITUXIMAB
     Indication: Hairy cell leukaemia
     Dosage: STARTING 28 DAYS (+/- 4 DAYS) AFTER THE INITIATION OF CLADRIBINE
     Route: 042
  2. CLADRIBINE [Suspect]
     Active Substance: CLADRIBINE
     Indication: Hairy cell leukaemia
     Dosage: 5.6 MG/M2 INTRAVENOUSLY OVER 2 H DAILY FOR 5 DAY
     Route: 042

REACTIONS (15)
  - Fatigue [Unknown]
  - Stress cardiomyopathy [Unknown]
  - Infection [Recovered/Resolved]
  - Febrile neutropenia [Unknown]
  - Cellulitis [Unknown]
  - Neoplasm malignant [Unknown]
  - COVID-19 [Unknown]
  - Nausea [Unknown]
  - Fatigue [Unknown]
  - Sinusitis [Unknown]
  - Herpes zoster [Unknown]
  - Pneumonia [Unknown]
  - Upper respiratory tract infection [Unknown]
  - Infusion related reaction [Unknown]
  - Rash [Unknown]
